FAERS Safety Report 22320746 (Version 1)
Quarter: 2023Q2

REPORT INFORMATION
  Report Type: Spontaneous
  Country: US (occurrence: US)
  Receive Date: 20230515
  Receipt Date: 20230515
  Transmission Date: 20230722
  Serious: Yes (Other)
  Sender: FDA-Public Use
  Company Number: US-002147023-NVSC2023US106828

PATIENT
  Sex: Female

DRUGS (5)
  1. TABRECTA [Suspect]
     Active Substance: CAPMATINIB
     Indication: Lung neoplasm
     Dosage: 150 MG, BID
     Route: 048
     Dates: start: 20230505
  2. METOPROLOL [Concomitant]
     Active Substance: METOPROLOL
     Indication: Anticoagulant therapy
     Dosage: 25 MG
     Route: 065
  3. ELIQUIS [Concomitant]
     Active Substance: APIXABAN
     Indication: Anticoagulant therapy
     Dosage: UNK
     Route: 065
  4. IBUPROFEN [Concomitant]
     Active Substance: IBUPROFEN
     Indication: Product used for unknown indication
     Dosage: UNK
     Route: 065
  5. VITAMINS NOS [Concomitant]
     Active Substance: VITAMINS
     Indication: Product used for unknown indication
     Dosage: UNK
     Route: 065

REACTIONS (7)
  - Atrial flutter [Unknown]
  - Cardiospasm [Unknown]
  - Heart rate increased [Unknown]
  - Thrombosis [Unknown]
  - Oesophagitis [Unknown]
  - Throat irritation [Unknown]
  - Product use complaint [Unknown]
